FAERS Safety Report 5506233-5 (Version None)
Quarter: 2007Q4

REPORT INFORMATION
  Report Type: 
  Country: None (occurrence: None)
  Receive Date: 20071101
  Receipt Date: 20071019
  Transmission Date: 20080405
  Serious: Yes (Other)
  Sender: FDA-Public Use
  Company Number: 2007EN000102

PATIENT
  Age: 63 Year
  Sex: Male

DRUGS (6)
  1. ABELCET [Suspect]
     Indication: CANDIDIASIS
     Dosage: 400 MG;QD;IV
     Route: 042
     Dates: start: 20070909, end: 20070909
  2. CEFTRIAXONE [Concomitant]
  3. FLUCLOXACILLIN [Concomitant]
  4. RIFAMPIN [Concomitant]
  5. ENOXAPARIN SODIUM [Concomitant]
  6. LANSOPRAZOLE [Concomitant]

REACTIONS (4)
  - CHILLS [None]
  - HYPERTENSION [None]
  - HYPERVENTILATION [None]
  - TACHYCARDIA [None]
